FAERS Safety Report 5142446-2 (Version None)
Quarter: 2006Q4

REPORT INFORMATION
  Report Type: 
  Country: None (occurrence: None)
  Receive Date: 20061030
  Receipt Date: 20061030
  Transmission Date: 20070319
  Serious: Yes (Hospitalization)
  Sender: FDA-Public Use
  Company Number: None

PATIENT
  Age: 63 Year
  Sex: Female

DRUGS (4)
  1. CETUXIMAB (CETUXIMAB) [Suspect]
     Indication: SQUAMOUS CELL CARCINOMA
     Dosage: 400 MG/M2 I.V.; 250 MG/M2 I.V.
     Route: 042
     Dates: start: 20060101, end: 20060101
  2. CETUXIMAB (CETUXIMAB) [Suspect]
     Indication: SQUAMOUS CELL CARCINOMA
     Dosage: 400 MG/M2 I.V.; 250 MG/M2 I.V.
     Route: 042
     Dates: start: 20060710, end: 20060808
  3. DOCETAXEL (DOCETAXEL) [Suspect]
     Indication: SQUAMOUS CELL CARCINOMA
     Dosage: 15 MG/M2 I.V
     Route: 042
     Dates: start: 20060710, end: 20060808
  4. RADIATION THERAPY [Suspect]
     Indication: SQUAMOUS CELL CARCINOMA
     Dates: start: 20060701, end: 20060808

REACTIONS (12)
  - CONSTIPATION [None]
  - DIVERTICULITIS [None]
  - DYSPHAGIA [None]
  - FEEDING TUBE COMPLICATION [None]
  - INFUSION RELATED REACTION [None]
  - RADIATION MUCOSITIS [None]
  - RADIATION SKIN INJURY [None]
  - RASH [None]
  - SALIVARY GLAND DISORDER [None]
  - SKIN DISCOLOURATION [None]
  - STOMATITIS [None]
  - STOMATITIS RADIATION [None]
